FAERS Safety Report 18181231 (Version 2)
Quarter: 2020Q3

REPORT INFORMATION
  Report Type: Spontaneous
  Country: CN (occurrence: CN)
  Receive Date: 20200821
  Receipt Date: 20200826
  Transmission Date: 20201103
  Serious: Yes (Hospitalization)
  Sender: FDA-Public Use
  Company Number: CN-ASTRAZENECA-2020SF03594

PATIENT
  Age: 68 Year
  Sex: Male
  Weight: 65 kg

DRUGS (8)
  1. SYMBICORT [Suspect]
     Active Substance: BUDESONIDE\FORMOTEROL FUMARATE DIHYDRATE
     Indication: ASTHMA
     Dosage: ONE INHALATION IN THE MORNING AND ONE INHALATION AT NIGHT
     Route: 055
  2. SYMBICORT [Suspect]
     Active Substance: BUDESONIDE\FORMOTEROL FUMARATE DIHYDRATE
     Indication: ASTHMA
     Dosage: TWO TIMES CONTINUOUSLY
     Route: 055
  3. OLANZAPINE. [Concomitant]
     Active Substance: OLANZAPINE
     Indication: MANIA
     Dates: start: 202007
  4. ASPIRIN. [Concomitant]
     Active Substance: ASPIRIN
     Indication: GERIATRIC ASSESSMENT
  5. SYMBICORT [Suspect]
     Active Substance: BUDESONIDE\FORMOTEROL FUMARATE DIHYDRATE
     Indication: ASTHMA
     Dosage: ONE INHALATION IN THE MORNING AND ONE INHALATION AT NIGHT
     Route: 055
  6. VALIUM [Suspect]
     Active Substance: DIAZEPAM
     Indication: DYSPNOEA
     Route: 048
  7. ASPIRIN. [Concomitant]
     Active Substance: ASPIRIN
     Indication: ARTERIOSCLEROSIS
  8. ASPIRIN. [Concomitant]
     Active Substance: ASPIRIN
     Indication: PRESENILE DEMENTIA

REACTIONS (5)
  - Dementia [Recovered/Resolved]
  - Product dose omission issue [Unknown]
  - Asthma [Recovered/Resolved]
  - Device use issue [Unknown]
  - Insomnia [Unknown]

NARRATIVE: CASE EVENT DATE: 202005
